FAERS Safety Report 12420205 (Version 1)
Quarter: 2016Q2

REPORT INFORMATION
  Report Type: Spontaneous
  Country: US (occurrence: US)
  Receive Date: 20160531
  Receipt Date: 20160531
  Transmission Date: 20160815
  Serious: No
  Sender: FDA-Public Use
  Company Number: US-PFIZER INC-2016251839

PATIENT
  Age: 53 Year
  Sex: Male
  Weight: 65.77 kg

DRUGS (1)
  1. LYRICA [Suspect]
     Active Substance: PREGABALIN
     Indication: OSTEOARTHRITIS
     Dosage: 75MG ONE CAPSULE TIMES ONE
     Route: 048
     Dates: start: 20160506

REACTIONS (15)
  - Arthralgia [Recovered/Resolved]
  - Pain [Recovered/Resolved]
  - Joint injury [Unknown]
  - Musculoskeletal discomfort [Recovered/Resolved]
  - Product use issue [Unknown]
  - Impaired driving ability [Recovered/Resolved]
  - Condition aggravated [Recovered/Resolved]
  - Nasal discomfort [Recovered/Resolved]
  - Tinnitus [Recovered/Resolved]
  - Pre-existing condition improved [Recovered/Resolved]
  - Paraesthesia [Recovered/Resolved]
  - Testicular pain [Recovered/Resolved]
  - Dry mouth [Recovered/Resolved]
  - Throat irritation [Recovered/Resolved]
  - Therapeutic response unexpected [Recovered/Resolved]

NARRATIVE: CASE EVENT DATE: 20160506
